FAERS Safety Report 9129319 (Version 1)
Quarter: 2013Q1

REPORT INFORMATION
  Report Type: Report from Study
  Country: US (occurrence: US)
  Receive Date: 20130228
  Receipt Date: 20130228
  Transmission Date: 20140127
  Serious: No
  Sender: FDA-Public Use
  Company Number: US-ABBOTT-13P-163-1041729-00

PATIENT
  Sex: Male
  Weight: 131.66 kg

DRUGS (17)
  1. ANDROGEL [Suspect]
     Indication: BLOOD TESTOSTERONE DECREASED
     Dosage: 2 PUMPS ACTUATIONS
     Dates: start: 201212, end: 201301
  2. ANDROGEL [Suspect]
     Dosage: TWO PUMP ACTUATIONS
     Dates: start: 201301
  3. CHANTIX [Concomitant]
     Indication: EX-TOBACCO USER
     Dates: start: 201210
  4. METOPROLOL [Concomitant]
     Indication: HYPERTENSION
  5. CITALOPRAM [Concomitant]
     Indication: PRODUCT USED FOR UNKNOWN INDICATION
  6. NIFEDIPINE [Concomitant]
     Indication: PRODUCT USED FOR UNKNOWN INDICATION
  7. LISINOPRIL [Concomitant]
     Indication: HYPERTENSION
  8. PREGABALIN [Concomitant]
     Indication: PRODUCT USED FOR UNKNOWN INDICATION
  9. LAMOTRIGINE [Concomitant]
     Indication: PRODUCT USED FOR UNKNOWN INDICATION
  10. AMITRIPTYLINE [Concomitant]
     Indication: PRODUCT USED FOR UNKNOWN INDICATION
  11. TRAZODONE [Concomitant]
     Indication: PRODUCT USED FOR UNKNOWN INDICATION
  12. HYDROCHLOROTHIAZIDE [Concomitant]
     Indication: HYPERTENSION
  13. TAMSULOSIN [Concomitant]
     Indication: PRODUCT USED FOR UNKNOWN INDICATION
  14. TRIMETAZIDINE [Concomitant]
     Indication: PRODUCT USED FOR UNKNOWN INDICATION
  15. ASPIRIN [Concomitant]
     Indication: PRODUCT USED FOR UNKNOWN INDICATION
  16. NOVALOG FLEX PEN [Concomitant]
     Indication: DIABETES MELLITUS
  17. GLARGINE LONG ACTING INSULIN [Concomitant]
     Indication: DIABETES MELLITUS

REACTIONS (1)
  - Dysgeusia [Not Recovered/Not Resolved]
